FAERS Safety Report 6025041-2 (Version None)
Quarter: 2008Q4

REPORT INFORMATION
  Report Type: 
  Country: None (occurrence: None)
  Receive Date: 20081230
  Receipt Date: 20081230
  Transmission Date: 20090506
  Serious: Yes (Death)
  Sender: FDA-Public Use
  Company Number: None

PATIENT
  Age: 49 Year
  Sex: Female
  Weight: 61.2356 kg

DRUGS (2)
  1. LEXAPRO [Suspect]
     Indication: ANXIETY
     Dosage: 10MG DAILY
     Dates: start: 20081110, end: 20081201
  2. LEXAPRO [Suspect]
     Indication: DEPRESSION
     Dosage: 10MG DAILY
     Dates: start: 20081110, end: 20081201

REACTIONS (1)
  - COMPLETED SUICIDE [None]
